FAERS Safety Report 5411651-X (Version None)
Quarter: 2007Q3

REPORT INFORMATION
  Report Type: 
  Country: None (occurrence: None)
  Receive Date: 20070810
  Receipt Date: 20070802
  Transmission Date: 20080115
  Serious: Yes (Other)
  Sender: FDA-Public Use
  Company Number: US-PFIZER INC-2007064703

PATIENT
  Age: 35 Year
  Sex: Male

DRUGS (2)
  1. GEODON [Suspect]
  2. ARTANE [Concomitant]

REACTIONS (1)
  - MYOCARDIAL INFARCTION [None]
